FAERS Safety Report 7815966-7 (Version None)
Quarter: 2011Q4

REPORT INFORMATION
  Report Type: 
  Country: None (occurrence: None)
  Receive Date: 20111014
  Receipt Date: 20111005
  Transmission Date: 20120403
  Serious: Yes (Hospitalization)
  Sender: FDA-Public Use
  Company Number: JP-MERCK-1109USA01618

PATIENT
  Age: 54 Year
  Sex: Female

DRUGS (9)
  1. LEVOFLOXACIN [Concomitant]
     Indication: POST PROCEDURAL INFECTION
     Route: 048
     Dates: start: 20100921, end: 20101006
  2. MAGNESIUM OXIDE [Concomitant]
     Indication: CONSTIPATION
     Route: 048
     Dates: start: 20100922, end: 20101030
  3. LENDORMIN [Concomitant]
     Indication: INSOMNIA
     Route: 048
     Dates: start: 20101023, end: 20101101
  4. LOXONIN [Concomitant]
     Indication: PROCEDURAL PAIN
     Route: 048
     Dates: start: 20100817, end: 20101024
  5. MUCOSTA [Concomitant]
     Indication: GASTRITIS PROPHYLAXIS
     Route: 048
     Dates: start: 20100817, end: 20101024
  6. FOSAMAX [Suspect]
     Indication: OSTEOPOROSIS
     Route: 048
     Dates: start: 20080528, end: 20100916
  7. ALLOPURINOL [Concomitant]
     Indication: HYPERURICAEMIA
     Route: 048
     Dates: start: 20110107
  8. KREMEZIN [Concomitant]
     Indication: RENAL FAILURE CHRONIC
     Route: 048
     Dates: start: 20100820
  9. METHYCOBAL [Concomitant]
     Indication: TRIGEMINAL PALSY
     Route: 048
     Dates: start: 20100829, end: 20110609

REACTIONS (3)
  - OSTEONECROSIS OF JAW [None]
  - FRACTURE DELAYED UNION [None]
  - EXPOSED BONE IN JAW [None]
